FAERS Safety Report 13736024 (Version 3)
Quarter: 2017Q3

REPORT INFORMATION
  Report Type: Spontaneous
  Country: US (occurrence: US)
  Receive Date: 20170710
  Receipt Date: 20170907
  Transmission Date: 20171127
  Serious: No
  Sender: FDA-Public Use
  Company Number: US-CELGENEUS-USA-20170504155

PATIENT
  Sex: Female
  Weight: 54.03 kg

DRUGS (1)
  1. POMALYST [Suspect]
     Active Substance: POMALIDOMIDE
     Indication: PLASMA CELL MYELOMA
     Dosage: 3 MILLIGRAM
     Route: 048
     Dates: start: 20170317

REACTIONS (4)
  - Restless legs syndrome [Unknown]
  - Rash maculo-papular [Unknown]
  - Cough [Unknown]
  - Dry skin [Unknown]

NARRATIVE: CASE EVENT DATE: 2017
